FAERS Safety Report 24215370 (Version 2)
Quarter: 2024Q3

REPORT INFORMATION
  Report Type: Spontaneous
  Country: US (occurrence: US)
  Receive Date: 20240816
  Receipt Date: 20240912
  Transmission Date: 20241017
  Serious: No
  Sender: HETERO
  Company Number: US-HETERO-HET2024US02655

PATIENT
  Age: 55 Year
  Sex: Female
  Weight: 65.7 kg

DRUGS (2)
  1. HIGH DENSITY POLYETHYLENE [Suspect]
     Active Substance: HIGH DENSITY POLYETHYLENE
     Indication: Constipation
     Dosage: 17 GRAM, QD (ONE PACKET IN THE MORNING))
     Route: 048
  2. HIGH DENSITY POLYETHYLENE [Suspect]
     Active Substance: HIGH DENSITY POLYETHYLENE
     Dosage: UNK
     Route: 065

REACTIONS (1)
  - Abdominal pain upper [Recovered/Resolved]

NARRATIVE: CASE EVENT DATE: 20240801
